FAERS Safety Report 9235145 (Version 1)
Quarter: 2013Q2

REPORT INFORMATION
  Report Type: Spontaneous
  Country: US (occurrence: US)
  Receive Date: 20130416
  Receipt Date: 20130416
  Transmission Date: 20140414
  Serious: No
  Sender: FDA-Public Use
  Company Number: US-009507513-1304USA006837

PATIENT
  Age: 83 Year
  Sex: Male

DRUGS (2)
  1. JUVISYNC [Suspect]
     Indication: DIABETES MELLITUS
     Dosage: 100/20 MG, QD
     Route: 048
     Dates: start: 20130220, end: 20130404
  2. JUVISYNC [Suspect]
     Indication: BLOOD CHOLESTEROL

REACTIONS (1)
  - Pruritus generalised [Recovering/Resolving]
